FAERS Safety Report 5264649-9 (Version None)
Quarter: 2007Q1

REPORT INFORMATION
  Report Type: 
  Country: None (occurrence: None)
  Receive Date: 20070314
  Receipt Date: 20070301
  Transmission Date: 20070707
  Serious: Yes (Other)
  Sender: FDA-Public Use
  Company Number: PHRM2007FR00657

PATIENT
  Sex: Female

DRUGS (1)
  1. FORADIL [Suspect]

REACTIONS (2)
  - DEVICE FAILURE [None]
  - SUFFOCATION FEELING [None]
